FAERS Safety Report 7714966-5 (Version None)
Quarter: 2011Q3

REPORT INFORMATION
  Report Type: 
  Country: None (occurrence: None)
  Receive Date: 20110829
  Receipt Date: 20110527
  Transmission Date: 20111222
  Serious: Yes (Hospitalization)
  Sender: FDA-Public Use
  Company Number: US-ASTRAZENECA-2011SE24197

PATIENT
  Age: 83 Year
  Sex: Female

DRUGS (4)
  1. VAGINAL ESTROGEN [Concomitant]
  2. VIMOVO [Suspect]
     Indication: MUSCULOSKELETAL PAIN
     Dosage: 500 MG/20 MG AT NIGHT
     Route: 048
     Dates: start: 20110101, end: 20110409
  3. IMIPRAMINE [Concomitant]
     Indication: URINARY INCONTINENCE
  4. BP MEDICATION [Concomitant]

REACTIONS (2)
  - CONSTIPATION [None]
  - GASTRIC ULCER HAEMORRHAGE [None]
